FAERS Safety Report 10676563 (Version 2)
Quarter: 2015Q1

REPORT INFORMATION
  Report Type: Report from Study
  Country: DE (occurrence: DE)
  Receive Date: 20141226
  Receipt Date: 20150108
  Transmission Date: 20150720
  Serious: Yes (Other)
  Sender: FDA-Public Use
  Company Number: PHHO2014DE017023

PATIENT
  Age: 59 Year
  Sex: Male
  Weight: 86 kg

DRUGS (10)
  1. PREDNISOLONE. [Concomitant]
     Active Substance: PREDNISOLONE
     Indication: LUNG TRANSPLANT
     Dosage: 7.5 MG, QD
     Route: 065
     Dates: start: 20130926
  2. VALGANCICLOVIR [Concomitant]
     Active Substance: VALGANCICLOVIR
     Indication: INFECTION PROPHYLAXIS
     Dosage: 450 MG, QD
     Route: 048
     Dates: start: 20130308
  3. ITRACONAZOLE. [Concomitant]
     Active Substance: ITRACONAZOLE
     Indication: INFECTION PROPHYLAXIS
     Dosage: 100 MG, BID
     Route: 048
     Dates: start: 20130308
  4. CICLOSPORIN A [Concomitant]
     Active Substance: CYCLOSPORINE
     Dosage: 35 MG, BID
     Route: 065
     Dates: start: 20141222, end: 20150105
  5. MYCOPHENOLATE [Concomitant]
     Active Substance: MYCOPHENOLIC ACID
     Indication: LUNG TRANSPLANT
     Dosage: 750 MG, BID
     Route: 065
     Dates: start: 20131004
  6. PRAVASTATIN [Concomitant]
     Active Substance: PRAVASTATIN\PRAVASTATIN SODIUM
     Indication: HYPERCHOLESTEROLAEMIA
     Dosage: 20 MG, QD
     Route: 048
     Dates: start: 20130308
  7. CICLOSPORIN A [Concomitant]
     Active Substance: CYCLOSPORINE
     Indication: LUNG TRANSPLANT
     Dosage: 35 MG, QD
     Route: 065
  8. COTRIM D.S. [Concomitant]
     Active Substance: SULFAMETHOXAZOLE\TRIMETHOPRIM
     Indication: INFECTION PROPHYLAXIS
     Dosage: 430 MG, QW2 (430 MG 2XWEEK)
     Route: 065
     Dates: start: 20130308
  9. PREDNISOLONE. [Concomitant]
     Active Substance: PREDNISOLONE
     Dosage: 70 MG, QD, THEN REDUCTION BY 5 MG STEPS EVERY WEEK
     Route: 065
     Dates: start: 20141222, end: 20141227
  10. EVEROLIMUS [Suspect]
     Active Substance: EVEROLIMUS
     Indication: LUNG TRANSPLANT
     Dosage: 1 MG, BID
     Route: 065
     Dates: start: 20140312, end: 20141222

REACTIONS (1)
  - Organising pneumonia [Not Recovered/Not Resolved]

NARRATIVE: CASE EVENT DATE: 20141208
